FAERS Safety Report 8298037-8 (Version None)
Quarter: 2012Q2

REPORT INFORMATION
  Report Type: 
  Country: None (occurrence: None)
  Receive Date: 20120419
  Receipt Date: 20120411
  Transmission Date: 20120825
  Serious: Yes (Hospitalization)
  Sender: FDA-Public Use
  Company Number: AU-UCBSA-039633

PATIENT
  Age: 35 Year
  Sex: Female
  Weight: 75.6 kg

DRUGS (14)
  1. KEPPRA [Suspect]
     Indication: EPILEPSY
     Route: 048
  2. ZOFRAN [Concomitant]
     Indication: NAUSEA
     Dosage: AS NEEDED
     Route: 048
  3. CLONIDINE [Concomitant]
     Indication: PAIN
     Route: 048
     Dates: start: 20120101
  4. INDERAL [Concomitant]
     Indication: PAIN
     Route: 048
     Dates: start: 20120101
  5. ZOFRAN [Concomitant]
     Indication: VOMITING
     Dosage: AS NEEDED
     Route: 048
  6. SEROQUEL [Concomitant]
     Indication: PAIN
     Route: 048
     Dates: start: 20120101
  7. SEROQUEL [Concomitant]
     Indication: DEPENDENCE
     Route: 048
     Dates: start: 20120101
  8. OXYCONTIN [Suspect]
     Indication: RHEUMATOID ARTHRITIS
     Route: 048
     Dates: start: 20020201
  9. CIMZIA [Suspect]
     Indication: RHEUMATOID ARTHRITIS
     Route: 058
     Dates: start: 20101215
  10. DUROGESIC PATCHES [Concomitant]
     Indication: RHEUMATOID ARTHRITIS
     Dosage: 100 MCG PER HOUR
     Route: 062
  11. DIAZEPAM [Concomitant]
     Indication: PAIN
     Route: 048
     Dates: start: 20120101
  12. INDERAL [Concomitant]
     Indication: DEPENDENCE
     Route: 048
     Dates: start: 20120101
  13. CLONIDINE [Concomitant]
     Indication: DEPENDENCE
     Route: 048
     Dates: start: 20120101
  14. DIAZEPAM [Concomitant]
     Indication: DEPENDENCE
     Route: 048
     Dates: start: 20120101

REACTIONS (4)
  - CONVULSION [None]
  - DRUG ABUSE [None]
  - DEPRESSION [None]
  - PREGNANCY [None]
